FAERS Safety Report 8756035 (Version 2)
Quarter: 2012Q4

REPORT INFORMATION
  Report Type: Spontaneous
  Country: GB (occurrence: None)
  Receive Date: 20120816
  Receipt Date: 20121011
  Transmission Date: 20130627
  Serious: Yes (Other)
  Sender: FDA-Public Use
  Company Number: CL-438-2012

PATIENT
  Age: 31 Year
  Sex: Female

DRUGS (2)
  1. METRONIDAZOLE [Suspect]
     Indication: ECZEMA
     Dosage: 250 mg/12 hours
     Dates: start: 20110928, end: 201110
  2. QUETIAPINE FUMARATE (QUETIAPINE FUMARATE) [Suspect]
     Indication: BEHAVIOR DISORDER
     Dosage: 25-300mg/day
     Dates: start: 201108, end: 201110

REACTIONS (2)
  - Parkinsonism [None]
  - Drug interaction [None]
